FAERS Safety Report 8450392-1 (Version None)
Quarter: 2012Q2

REPORT INFORMATION
  Report Type: 
  Country: None (occurrence: None)
  Receive Date: 20120614
  Receipt Date: 20120614
  Transmission Date: 20120825
  Serious: Yes (Other)
  Sender: FDA-Public Use
  Company Number: None

PATIENT
  Age: 55 Year
  Sex: Male
  Weight: 95.2554 kg

DRUGS (1)
  1. FINASTERIDE [Suspect]
     Indication: BENIGN PROSTATIC HYPERPLASIA
     Dosage: 5 MG, 1 DAILY, PO
     Route: 048
     Dates: start: 20100901, end: 20120613

REACTIONS (3)
  - PEYRONIE'S DISEASE [None]
  - ERECTILE DYSFUNCTION [None]
  - LIBIDO DECREASED [None]
